FAERS Safety Report 7777700 (Version 4)
Quarter: 2013Q1

REPORT INFORMATION
  Report Type: Spontaneous
  Country: US (occurrence: US)
  Receive Date: 20110128
  Receipt Date: 20130130
  Transmission Date: 20140127
  Serious: Yes (Life-Threatening, Hospitalization, Other)
  Sender: FDA-Public Use
  Company Number: US-BAYER-201037909NA

PATIENT
  Age: 38 Year
  Sex: Female
  Weight: 127 kg

DRUGS (20)
  1. YAZ [Suspect]
     Indication: ACNE
     Dosage: UNK
     Route: 048
     Dates: start: 2000, end: 2003
  2. YAZ [Suspect]
     Indication: PREMENSTRUAL DYSPHORIC DISORDER
  3. YASMIN [Suspect]
     Indication: ACNE
     Dosage: UNK
     Route: 048
     Dates: start: 2000, end: 2003
  4. YASMIN [Suspect]
     Indication: PREMENSTRUAL DYSPHORIC DISORDER
  5. OCELLA [Suspect]
     Indication: ACNE
     Dosage: UNK
     Route: 048
     Dates: start: 2000, end: 2003
  6. CEPHALEXIN [Concomitant]
     Dosage: UNK
     Dates: start: 200103
  7. PREDNISONE [Concomitant]
     Dosage: UNK
     Dates: start: 200110
  8. PREDNISONE [Concomitant]
     Dosage: UNK
     Dates: start: 200111
  9. ULTRACET [Concomitant]
     Dosage: UNK
     Dates: start: 200110
  10. PERCOCET [Concomitant]
     Dosage: UNK
     Dates: start: 200102
  11. PERCOCET [Concomitant]
     Dosage: UNK
     Dates: start: 200111
  12. AMOXICILLIN [Concomitant]
     Dosage: UNK
     Dates: start: 200101
  13. VI-Q-TUSS [Concomitant]
     Dosage: UNK
     Dates: start: 200101
  14. METHYLPREDNISOLON [Concomitant]
     Dosage: UNK
     Dates: start: 200104
  15. BIAXIN [Concomitant]
     Dosage: UNK
     Dates: start: 200104
  16. FLOVENT [Concomitant]
  17. MAXAIR [Concomitant]
  18. PRENATAL VITAMINS [Concomitant]
  19. AUGMENTIN [Concomitant]
  20. INSULIN [Concomitant]

REACTIONS (28)
  - Deep vein thrombosis [None]
  - Pain in extremity [None]
  - Oedema [None]
  - Swelling [None]
  - Pain in extremity [None]
  - Pregnancy on oral contraceptive [None]
  - Abdominal pain [None]
  - Diarrhoea [None]
  - Haemorrhage in pregnancy [None]
  - Subclavian vein thrombosis [None]
  - Productive cough [None]
  - Deep vein thrombosis [None]
  - Suicide attempt [None]
  - Depressive symptom [None]
  - Depressed mood [None]
  - Asthenia [None]
  - Disturbance in attention [None]
  - Decreased appetite [None]
  - Weight decreased [None]
  - Decreased interest [None]
  - Feeling guilty [None]
  - Jugular vein thrombosis [None]
  - Subclavian vein thrombosis [None]
  - Nausea [None]
  - Vomiting [None]
  - Poor quality sleep [None]
  - Drug ineffective [None]
  - Off label use [None]
